FAERS Safety Report 4697182-3 (Version None)
Quarter: 2005Q2

REPORT INFORMATION
  Report Type: 
  Country: None (occurrence: None)
  Receive Date: 20050622
  Receipt Date: 20050614
  Transmission Date: 20051028
  Serious: Yes (Hospitalization)
  Sender: FDA-Public Use
  Company Number: US-AMGEN-US139092

PATIENT
  Age: 69 Year
  Sex: Female

DRUGS (2)
  1. PROCRIT [Suspect]
     Indication: ANAEMIA
  2. ANTIHYPERTENSIVE MEDICATION NOS [Concomitant]

REACTIONS (1)
  - PULMONARY EMBOLISM [None]
